FAERS Safety Report 17070547 (Version 1)
Quarter: 2019Q4

REPORT INFORMATION
  Report Type: Other
  Country: IE (occurrence: IE)
  Receive Date: 20191125
  Receipt Date: 20191125
  Transmission Date: 20200122
  Serious: Yes (Other)
  Sender: FDA-Public Use
  Company Number: IE-DEXPHARM-20191020

PATIENT
  Age: 26 Year
  Sex: Female

DRUGS (2)
  1. CHLORHEXIDINE [Suspect]
     Active Substance: CHLORHEXIDINE
     Indication: STERILISATION
     Route: 061
  2. LIDOCAINE 2% [Concomitant]
     Active Substance: LIDOCAINE
     Indication: EPIDURAL ANALGESIA

REACTIONS (5)
  - Soft tissue inflammation [Recovered/Resolved]
  - Maternal exposure during pregnancy [Recovered/Resolved]
  - Injection site erythema [Recovered/Resolved]
  - Back pain [Recovered/Resolved]
  - Accidental exposure to product [Recovered/Resolved]
